FAERS Safety Report 4641954-8 (Version None)
Quarter: 2005Q2

REPORT INFORMATION
  Report Type: 
  Country: None (occurrence: None)
  Receive Date: 20050420
  Receipt Date: 20050330
  Transmission Date: 20051028
  Serious: Yes (Other)
  Sender: FDA-Public Use
  Company Number: USA050394458

PATIENT
  Age: 13 Year
  Sex: Male
  Weight: 59 kg

DRUGS (2)
  1. STRATTERA [Suspect]
     Indication: ATTENTION DEFICIT/HYPERACTIVITY DISORDER
     Dosage: 80 MG DAY
     Dates: start: 20040501, end: 20050301
  2. ALLOPURINOL [Concomitant]

REACTIONS (5)
  - BLOOD BILIRUBIN INCREASED [None]
  - JAUNDICE [None]
  - LIVER DISORDER [None]
  - PRURITUS [None]
  - VIRAL INFECTION [None]
